FAERS Safety Report 9668610 (Version 3)
Quarter: 2013Q4

REPORT INFORMATION
  Report Type: Report from Study
  Country: DK (occurrence: DK)
  Receive Date: 20131105
  Receipt Date: 20131113
  Transmission Date: 20140711
  Serious: Yes (Hospitalization)
  Sender: FDA-Public Use
  Company Number: DK-BRISTOL-MYERS SQUIBB COMPANY-19525385

PATIENT
  Age: 74 Year
  Sex: Male

DRUGS (12)
  1. BLINDED: IPILIMUMAB [Suspect]
     Indication: NON-SMALL CELL LUNG CANCER
     Dosage: 1DF: 2004 UNITS NOS.
     Route: 042
     Dates: start: 20130903, end: 20130926
  2. CARBOPLATIN [Suspect]
     Indication: NON-SMALL CELL LUNG CANCER
     Dosage: 1DF: 1470 UNITS NOS.
     Route: 042
     Dates: start: 20130719, end: 20130926
  3. PACLITAXEL [Suspect]
     Indication: NON-SMALL CELL LUNG CANCER
     Dosage: 1DF: 1872 UNITS NOS
     Route: 042
     Dates: start: 20130719, end: 20130926
  4. BLINDED: PLACEBO [Suspect]
     Indication: NON-SMALL CELL LUNG CANCER
     Route: 042
     Dates: start: 20130903, end: 20130926
  5. ACETYLSALICYLSYRE [Suspect]
     Dates: start: 20130701
  6. AMLODIPINE [Concomitant]
     Dates: start: 20030701
  7. LOSARTAN [Concomitant]
     Dates: start: 20030701
  8. PANTOPRAZOLE [Concomitant]
     Dates: start: 20130726
  9. FLUCONAZOLE [Concomitant]
     Dates: start: 20130913
  10. CODEINE [Concomitant]
     Dates: start: 20130914
  11. MORPHINE [Concomitant]
     Dates: start: 20131021
  12. SODIUM PICOSULFATE [Concomitant]
     Dates: start: 20030701

REACTIONS (2)
  - Gastrointestinal haemorrhage [Unknown]
  - Vomiting [Recovered/Resolved]
